FAERS Safety Report 6195880-6 (Version None)
Quarter: 2009Q2

REPORT INFORMATION
  Report Type: 
  Country: None (occurrence: None)
  Receive Date: 20090520
  Receipt Date: 20090511
  Transmission Date: 20091009
  Serious: Yes (Hospitalization)
  Sender: FDA-Public Use
  Company Number: US-ROCHE-624201

PATIENT
  Age: 89 Year
  Sex: Female

DRUGS (4)
  1. BONIVA [Suspect]
     Indication: OSTEOPOROSIS
     Route: 048
     Dates: start: 20060101
  2. PLAVIX [Concomitant]
  3. FOLIC ACID [Concomitant]
  4. LEXAPRO [Concomitant]

REACTIONS (6)
  - BALANCE DISORDER [None]
  - CONTUSION [None]
  - FALL [None]
  - GALLBLADDER OBSTRUCTION [None]
  - SKIN LACERATION [None]
  - URINARY TRACT INFECTION [None]
